FAERS Safety Report 25809840 (Version 1)
Quarter: 2025Q3

REPORT INFORMATION
  Report Type: Spontaneous
  Country: US (occurrence: US)
  Receive Date: 20250916
  Receipt Date: 20250916
  Transmission Date: 20251021
  Serious: Yes (Life-Threatening, Hospitalization, Other)
  Sender: AMNEAL
  Company Number: US-AMNEAL PHARMACEUTICALS-2025-AMRX-03516

PATIENT
  Age: 71 Year
  Sex: Female

DRUGS (3)
  1. BACLOFEN [Suspect]
     Active Substance: BACLOFEN
     Indication: Multiple sclerosis
     Route: 037
  2. BACLOFEN [Suspect]
     Active Substance: BACLOFEN
     Route: 037
  3. CLONIDINE [Concomitant]
     Active Substance: CLONIDINE
     Indication: Product used for unknown indication
     Route: 065

REACTIONS (6)
  - Pulseless electrical activity [Recovering/Resolving]
  - Coma [Recovering/Resolving]
  - Generalised tonic-clonic seizure [Recovering/Resolving]
  - Overdose [Unknown]
  - Hypotension [Recovering/Resolving]
  - Bradycardia [Recovering/Resolving]
